FAERS Safety Report 6247660-0 (Version None)
Quarter: 2009Q2

REPORT INFORMATION
  Report Type: 
  Country: None (occurrence: None)
  Receive Date: 20090626
  Receipt Date: 20090617
  Transmission Date: 20091009
  Serious: Yes (Hospitalization, Other)
  Sender: FDA-Public Use
  Company Number: EG-PFIZER INC-2009228867

PATIENT
  Age: 55 Year

DRUGS (3)
  1. LYRICA [Suspect]
     Indication: NEURALGIA
     Dosage: 75 MG, 1X/DAY
     Route: 048
     Dates: start: 20090615, end: 20090615
  2. CELEBREX [Suspect]
     Indication: SCIATICA
     Dosage: 200 MG, 1X/DAY
     Route: 048
     Dates: start: 20090615, end: 20090615
  3. CALCIUM [Concomitant]
     Indication: RENAL FAILURE
     Dosage: UNK
     Route: 048

REACTIONS (1)
  - COMA [None]
